FAERS Safety Report 4743753-5 (Version None)
Quarter: 2005Q3

REPORT INFORMATION
  Report Type: 
  Country: None (occurrence: None)
  Receive Date: 20050812
  Receipt Date: 20050801
  Transmission Date: 20060218
  Serious: Yes (Other)
  Sender: FDA-Public Use
  Company Number: GB-GLAXOSMITHKLINE-B0389332A

PATIENT
  Age: 44 Year
  Sex: Female

DRUGS (10)
  1. ZYBAN [Suspect]
     Dosage: 150MG PER DAY
     Route: 048
     Dates: start: 20050707
  2. TRAMADOL HCL [Concomitant]
     Dosage: 100MG FOUR TIMES PER DAY
     Route: 048
  3. ZOPICLONE [Concomitant]
     Dosage: 7.5MG AT NIGHT
     Route: 048
  4. LORATADINE [Concomitant]
     Dosage: 10MG PER DAY
     Route: 048
  5. CETIRIZINE HCL [Concomitant]
     Dosage: 10MG PER DAY
     Route: 048
  6. ACETAMINOPHEN W/ CODEINE [Concomitant]
     Route: 048
  7. DICLOFENAC [Concomitant]
     Dosage: 50MG THREE TIMES PER DAY
     Route: 048
  8. PROPRANOLOL [Concomitant]
     Dosage: 80MG TWICE PER DAY
     Route: 048
  9. BECLOMETHASONE DIPROPIONATE [Concomitant]
     Dosage: 400MCG TWICE PER DAY
     Route: 055
  10. FORMOTEROL [Concomitant]
     Dosage: 12MCG VARIABLE DOSE
     Route: 055

REACTIONS (2)
  - DRUG INTERACTION [None]
  - HALLUCINATION, VISUAL [None]
